FAERS Safety Report 22520431 (Version 1)
Quarter: 2023Q2

REPORT INFORMATION
  Report Type: Spontaneous
  Country: CA (occurrence: CA)
  Receive Date: 20230605
  Receipt Date: 20230605
  Transmission Date: 20230722
  Serious: Yes (Other)
  Sender: FDA-Public Use
  Company Number: CA-TEVA-2023-CA-2892736

PATIENT
  Age: 75 Year
  Sex: Female

DRUGS (2)
  1. CYCLOSPORINE [Suspect]
     Active Substance: CYCLOSPORINE
     Indication: Product used for unknown indication
     Route: 065
  2. RAPAMUNE [Suspect]
     Active Substance: SIROLIMUS
     Indication: Aplasia pure red cell
     Route: 065

REACTIONS (3)
  - Aplasia pure red cell [Unknown]
  - Gastrointestinal disorder [Unknown]
  - Nausea [Unknown]
